FAERS Safety Report 17657521 (Version 1)
Quarter: 2020Q2

REPORT INFORMATION
  Report Type: Spontaneous
  Country: JP (occurrence: JP)
  Receive Date: 20200410
  Receipt Date: 20200410
  Transmission Date: 20200713
  Serious: Yes (Other)
  Sender: FDA-Public Use
  Company Number: JP-ANIPHARMA-2020-JP-000110

PATIENT
  Age: 70 Year
  Sex: Male
  Weight: 82 kg

DRUGS (3)
  1. CANDESARTAN CILEXETIL. [Suspect]
     Active Substance: CANDESARTAN CILEXETIL
     Indication: HYPERTENSION
     Dosage: 4 MG QD
     Route: 048
     Dates: start: 20190405, end: 20190419
  2. IMFINZI [Suspect]
     Active Substance: DURVALUMAB
     Dosage: 10 MG/KG Q2WK
     Route: 042
     Dates: start: 20190110, end: 20190524
  3. AMLODIPINE [Suspect]
     Active Substance: AMLODIPINE BESYLATE
     Dosage: 5 MG QD / 10 MG QD
     Route: 048
     Dates: start: 20190322

REACTIONS (4)
  - Proteinuria [Recovering/Resolving]
  - Renal tubular disorder [Unknown]
  - Tubulointerstitial nephritis [Unknown]
  - Renal impairment [Recovering/Resolving]

NARRATIVE: CASE EVENT DATE: 20190510
